FAERS Safety Report 5576367-8 (Version None)
Quarter: 2007Q4

REPORT INFORMATION
  Report Type: 
  Country: None (occurrence: None)
  Receive Date: 20071228
  Receipt Date: 20071126
  Transmission Date: 20080405
  Serious: No
  Sender: FDA-Public Use
  Company Number: US-BAYER-200715339NA

PATIENT
  Sex: Female

DRUGS (1)
  1. DROSPIRENONE W/ETHINYLESTRADIOL (YAZ) [Suspect]
     Dates: start: 20070401

REACTIONS (2)
  - ABDOMINAL DISCOMFORT [None]
  - METRORRHAGIA [None]
